FAERS Safety Report 4938628-2 (Version None)
Quarter: 2006Q1

REPORT INFORMATION
  Report Type: 
  Country: None (occurrence: None)
  Receive Date: 20060306
  Receipt Date: 20060228
  Transmission Date: 20060701
  Serious: Yes (Hospitalization, Other)
  Sender: FDA-Public Use
  Company Number: US200511001582

PATIENT
  Age: 47 Year
  Sex: Female

DRUGS (2)
  1. CYMBALTA [Suspect]
     Indication: DEPRESSION
     Dosage: 60 MG,
     Dates: start: 20051017, end: 20051116
  2. SYNTHROID [Concomitant]

REACTIONS (2)
  - GALLBLADDER DISORDER [None]
  - HEPATITIS ACUTE [None]
